FAERS Safety Report 4267079-1 (Version None)
Quarter: 2004Q1

REPORT INFORMATION
  Report Type: 
  Country: None (occurrence: None)
  Receive Date: 20040108
  Receipt Date: 20031126
  Transmission Date: 20041129
  Serious: Yes (Life-Threatening)
  Sender: FDA-Public Use
  Company Number: PHNR2003AU01657

PATIENT
  Age: 22 Year
  Sex: Female

DRUGS (1)
  1. SYNTOCINON [Suspect]
     Indication: POSTPARTUM HAEMORRHAGE
     Dosage: 2 X 10 IU INFUSION
     Dates: start: 20031107, end: 20031107

REACTIONS (4)
  - DRUG INEFFECTIVE [None]
  - HYSTERECTOMY [None]
  - PHARMACEUTICAL PRODUCT COMPLAINT [None]
  - UTERINE HYPOTONUS [None]
